FAERS Safety Report 25227259 (Version 1)
Quarter: 2025Q2

REPORT INFORMATION
  Report Type: Spontaneous
  Country: CO (occurrence: CO)
  Receive Date: 20250422
  Receipt Date: 20250422
  Transmission Date: 20250717
  Serious: Yes (Hospitalization)
  Sender: BOEHRINGER INGELHEIM
  Company Number: CO-BoehringerIngelheim-2025-BI-023373

PATIENT
  Age: 70 Year
  Sex: Male
  Weight: 72 kg

DRUGS (1)
  1. OFEV [Suspect]
     Active Substance: NINTEDANIB
     Indication: Pulmonary fibrosis
     Dates: start: 20250113

REACTIONS (1)
  - Haemoglobin decreased [Unknown]
